FAERS Safety Report 4286528-6 (Version None)
Quarter: 2004Q1

REPORT INFORMATION
  Report Type: 
  Country: None (occurrence: None)
  Receive Date: 20040205
  Receipt Date: 20040205
  Transmission Date: 20041129
  Serious: Yes (Other)
  Sender: FDA-Public Use
  Company Number: None

PATIENT
  Age: 14 Year
  Sex: Female
  Weight: 58.9676 kg

DRUGS (1)
  1. CORICIDIN [Suspect]
     Dosage: 31 TABLETS ORAL
     Route: 048
     Dates: start: 20040122, end: 20040122

REACTIONS (4)
  - ABNORMAL BEHAVIOUR [None]
  - INTENTIONAL OVERDOSE [None]
  - MUSCLE TWITCHING [None]
  - SOMNOLENCE [None]
